FAERS Safety Report 5828289-2 (Version None)
Quarter: 2008Q3

REPORT INFORMATION
  Report Type: 
  Country: None (occurrence: None)
  Receive Date: 20080729
  Receipt Date: 20080729
  Transmission Date: 20090109
  Serious: No
  Sender: FDA-Public Use
  Company Number: None

PATIENT
  Sex: Male
  Weight: 30.6 kg

DRUGS (1)
  1. RISPERIDONE [Suspect]
     Dosage: 1MG/1ML 0.5ML AM 1ML HS PO
     Route: 048
     Dates: start: 20080714

REACTIONS (3)
  - ABNORMAL BEHAVIOUR [None]
  - PHARMACEUTICAL PRODUCT COMPLAINT [None]
  - SLEEP DISORDER [None]
